FAERS Safety Report 4377808-4 (Version None)
Quarter: 2004Q2

REPORT INFORMATION
  Report Type: 
  Country: None (occurrence: None)
  Receive Date: 20040615
  Receipt Date: 20040615
  Transmission Date: 20050107
  Serious: No
  Sender: FDA-Public Use
  Company Number: None

PATIENT

DRUGS (14)
  1. OXALIPLATIN [Suspect]
     Indication: GASTRIC CANCER
     Dates: start: 20040426
  2. OXALIPLATIN [Suspect]
     Indication: GASTRIC CANCER
     Dates: start: 20040503
  3. OXALIPLATIN [Suspect]
     Indication: GASTRIC CANCER
     Dates: start: 20040510
  4. OXALIPLATIN [Suspect]
     Indication: GASTRIC CANCER
     Dates: start: 20040517
  5. OXALIPLATIN [Suspect]
     Indication: GASTRIC CANCER
     Dates: start: 20040524
  6. FLUOROURACIL [Suspect]
     Indication: GASTRIC CANCER
     Dates: start: 20040426, end: 20040430
  7. FLUOROURACIL [Suspect]
     Indication: GASTRIC CANCER
     Dates: start: 20030503, end: 20040507
  8. FLUOROURACIL [Suspect]
     Indication: GASTRIC CANCER
     Dates: start: 20040510, end: 20040514
  9. FLUOROURACIL [Suspect]
     Indication: GASTRIC CANCER
     Dates: start: 20040524, end: 20040528
  10. RADIATION [Suspect]
     Indication: GASTRIC CANCER
     Dates: start: 20040426, end: 20040430
  11. RADIATION [Suspect]
     Indication: GASTRIC CANCER
     Dates: start: 20040503, end: 20040507
  12. RADIATION [Suspect]
     Indication: GASTRIC CANCER
     Dates: start: 20040510, end: 20040514
  13. RADIATION [Suspect]
     Indication: GASTRIC CANCER
     Dates: start: 20040517, end: 20040521
  14. RADIATION [Suspect]
     Indication: GASTRIC CANCER
     Dates: start: 20040524, end: 20040528

REACTIONS (2)
  - NAUSEA [None]
  - VOMITING [None]
